FAERS Safety Report 5226478-1 (Version None)
Quarter: 2007Q1

REPORT INFORMATION
  Report Type: 
  Country: None (occurrence: None)
  Receive Date: 20070201
  Receipt Date: 20070108
  Transmission Date: 20070707
  Serious: Yes (Hospitalization)
  Sender: FDA-Public Use
  Company Number: 2007SE00554

PATIENT
  Sex: Male

DRUGS (1)
  1. ATENOLOL [Suspect]

REACTIONS (1)
  - ACUTE PULMONARY OEDEMA [None]
